FAERS Safety Report 15879215 (Version 1)
Quarter: 2019Q1

REPORT INFORMATION
  Report Type: Report from Study
  Country: US (occurrence: US)
  Receive Date: 20190128
  Receipt Date: 20190128
  Transmission Date: 20190417
  Serious: Yes (Hospitalization)
  Sender: FDA-Public Use
  Company Number: US-ROCHE-2248339

PATIENT
  Age: 71 Year
  Sex: Female
  Weight: 56.2 kg

DRUGS (4)
  1. UTOMILUMAB [Suspect]
     Active Substance: UTOMILUMAB
     Indication: HER-2 POSITIVE BREAST CANCER
     Dosage: CYCLIC
     Route: 065
  2. TRASTUZUMAB. [Suspect]
     Active Substance: TRASTUZUMAB
     Indication: HER-2 POSITIVE BREAST CANCER
     Dosage: CYCLIC
     Route: 065
  3. AVELUMAB [Suspect]
     Active Substance: AVELUMAB
     Indication: HER-2 POSITIVE BREAST CANCER
     Dosage: CYCLIC
     Route: 065
  4. VINORELBINE [Suspect]
     Active Substance: VINORELBINE\VINORELBINE TARTRATE
     Indication: HER-2 POSITIVE BREAST CANCER
     Dosage: CYCLIC
     Route: 065

REACTIONS (1)
  - Mental status changes [Unknown]

NARRATIVE: CASE EVENT DATE: 20181226
